FAERS Safety Report 25385627 (Version 1)
Quarter: 2025Q2

REPORT INFORMATION
  Report Type: Spontaneous
  Country: JP (occurrence: JP)
  Receive Date: 20250602
  Receipt Date: 20250602
  Transmission Date: 20250716
  Serious: Yes (Hospitalization)
  Sender: EPIC PHARM
  Company Number: JP-EPICPHARMA-JP-2025EPCLIT00662

PATIENT
  Age: 13 Year
  Sex: Male
  Weight: 46.0 kg

DRUGS (1)
  1. CEFTRIAXONE SODIUM [Suspect]
     Active Substance: CEFTRIAXONE SODIUM
     Indication: Product used for unknown indication
     Route: 065

REACTIONS (4)
  - Fatigue [Recovering/Resolving]
  - Pyrexia [Recovering/Resolving]
  - Chills [Recovering/Resolving]
  - Rash [Recovering/Resolving]
